FAERS Safety Report 24565563 (Version 1)
Quarter: 2024Q4

REPORT INFORMATION
  Report Type: Spontaneous
  Country: US (occurrence: US)
  Receive Date: 20241030
  Receipt Date: 20241030
  Transmission Date: 20250114
  Serious: Yes (Hospitalization, Other)
  Sender: RANBAXY
  Company Number: US-SUN PHARMACEUTICAL INDUSTRIES LTD-2024R1-476003

PATIENT
  Age: 43 Year
  Sex: Male

DRUGS (1)
  1. PREDNISONE [Suspect]
     Active Substance: PREDNISONE
     Indication: COVID-19 pneumonia
     Dosage: 40 MILLIGRAM, DAILY
     Route: 065

REACTIONS (3)
  - Therapy non-responder [Unknown]
  - Condition aggravated [Unknown]
  - Hypoxia [Recovered/Resolved]
